FAERS Safety Report 7547034-6 (Version None)
Quarter: 2011Q2

REPORT INFORMATION
  Report Type: 
  Country: None (occurrence: None)
  Receive Date: 20110607
  Receipt Date: 20110601
  Transmission Date: 20111010
  Serious: Yes (Hospitalization)
  Sender: FDA-Public Use
  Company Number: 2010SP007164

PATIENT
  Age: 23 Year
  Sex: Female
  Weight: 46.2669 kg

DRUGS (2)
  1. NUVARING [Suspect]
     Indication: CONTRACEPTION
     Dosage: 1 DF
     Dates: start: 20070901, end: 20080101
  2. NUVARING [Suspect]
     Indication: CONTRACEPTION
     Dosage: 1 DF
     Dates: start: 20050101

REACTIONS (7)
  - HYPERCOAGULATION [None]
  - CERVICITIS [None]
  - PULMONARY EMBOLISM [None]
  - UPPER RESPIRATORY TRACT INFECTION [None]
  - THROMBOSIS [None]
  - CERVICAL DYSPLASIA [None]
  - PHARYNGITIS STREPTOCOCCAL [None]
